FAERS Safety Report 8443204-3 (Version None)
Quarter: 2012Q2

REPORT INFORMATION
  Report Type: 
  Country: None (occurrence: None)
  Receive Date: 20120617
  Receipt Date: 20120606
  Transmission Date: 20120825
  Serious: Yes (Hospitalization, Other)
  Sender: FDA-Public Use
  Company Number: JP-VERTEX PHARMACEUTICALS INC.-AE-2012-003961

PATIENT
  Age: 63 Year
  Sex: Male

DRUGS (14)
  1. REBETOL [Concomitant]
     Route: 048
     Dates: start: 20120220, end: 20120226
  2. REBETOL [Concomitant]
     Route: 048
     Dates: start: 20120221, end: 20120226
  3. REBETOL [Concomitant]
     Route: 048
     Dates: start: 20120227, end: 20120302
  4. PEG-INTRON [Concomitant]
     Indication: HEPATITIS C
     Route: 058
     Dates: start: 20111212, end: 20120122
  5. DIOVAN [Concomitant]
     Route: 048
     Dates: start: 20120330
  6. TELAVIC (TELAPREVIR) [Suspect]
     Indication: HEPATITIS C
     Route: 048
     Dates: start: 20111212
  7. ALLEGRA [Concomitant]
     Route: 048
     Dates: start: 20111219, end: 20120302
  8. NORVASC [Concomitant]
     Route: 048
     Dates: start: 20120330
  9. TELAVIC (TELAPREVIR) [Suspect]
     Route: 048
     Dates: start: 20120217, end: 20120302
  10. RIKKUNSHI-TO [Concomitant]
     Route: 048
     Dates: start: 20111216, end: 20120313
  11. PEG-INTRON [Concomitant]
     Route: 058
     Dates: start: 20120123, end: 20120227
  12. REBETOL [Concomitant]
     Route: 048
     Dates: start: 20120213, end: 20120216
  13. REBETOL [Concomitant]
     Route: 048
     Dates: start: 20120217, end: 20120219
  14. REBETOL [Concomitant]
     Indication: HEPATITIS C
     Route: 048
     Dates: start: 20111212, end: 20120212

REACTIONS (2)
  - RETINOPATHY [None]
  - HAEMOGLOBIN DECREASED [None]
